FAERS Safety Report 4673863-2 (Version None)
Quarter: 2005Q2

REPORT INFORMATION
  Report Type: 
  Country: None (occurrence: None)
  Receive Date: 20050524
  Receipt Date: 20050518
  Transmission Date: 20051028
  Serious: Yes (Death)
  Sender: FDA-Public Use
  Company Number: CA_050508139

PATIENT
  Age: 50 Year
  Sex: Male

DRUGS (1)
  1. XIGRIS [Suspect]
     Dosage: UNK
     Route: 065

REACTIONS (1)
  - SEPTIC SHOCK [None]
